FAERS Safety Report 19729428 (Version 1)
Quarter: 2021Q3

REPORT INFORMATION
  Report Type: Spontaneous
  Country: US (occurrence: US)
  Receive Date: 20210820
  Receipt Date: 20210820
  Transmission Date: 20211014
  Serious: No
  Sender: FDA-Public Use
  Company Number: US-PFIZER INC-2019455106

PATIENT
  Age: 73 Year
  Sex: Male

DRUGS (1)
  1. LYRICA [Suspect]
     Active Substance: PREGABALIN
     Indication: POLYNEUROPATHY
     Dosage: 150 MG, 3X/DAY (CAPSULE 1 TO 3 HOURS BEFORE BEDTIME IN THE EVENING THREE TIMES A DAY 90 DAYS)
     Route: 048

REACTIONS (2)
  - Dysgraphia [Unknown]
  - Nervousness [Unknown]
